FAERS Safety Report 9201469 (Version 4)
Quarter: 2013Q2

REPORT INFORMATION
  Report Type: Spontaneous
  Country: IE (occurrence: IE)
  Receive Date: 20130401
  Receipt Date: 20130528
  Transmission Date: 20140414
  Serious: Yes (Other)
  Sender: FDA-Public Use
  Company Number: IE-JNJFOC-20130304001

PATIENT
  Age: 59 Year
  Sex: Female
  Weight: 62.6 kg

DRUGS (5)
  1. DOXORUBICIN HYDROCHLORIDE (CAELYX) [Suspect]
     Indication: BREAST CANCER METASTATIC
     Route: 042
     Dates: start: 20130208, end: 20130208
  2. COCODAMOL [Concomitant]
     Indication: PAIN
     Dosage: 500/30 AS REQUIRED
     Route: 048
  3. SPIRONOLACTONE [Concomitant]
     Indication: ASCITES
     Dosage: SPIRANOLACTONE 50 (UNITS UNSPECIFIED)
     Route: 048
  4. LANSOPRAZOLE [Concomitant]
     Indication: STRESS ULCER
     Route: 048
  5. LANSOPRAZOLE [Concomitant]
     Indication: DYSPEPSIA
     Route: 048

REACTIONS (2)
  - Ascites [Recovering/Resolving]
  - Treatment failure [Unknown]
